FAERS Safety Report 6429672-7 (Version None)
Quarter: 2009Q4

REPORT INFORMATION
  Report Type: 
  Country: None (occurrence: None)
  Receive Date: 20091106
  Receipt Date: 20091027
  Transmission Date: 20100525
  Serious: Yes (Hospitalization)
  Sender: FDA-Public Use
  Company Number: US-BIOGENIDEC-2009BI035179

PATIENT
  Age: 46 Year
  Sex: Female

DRUGS (1)
  1. TYSABRI [Suspect]
     Indication: MULTIPLE SCLEROSIS
     Dates: start: 20090501

REACTIONS (5)
  - ASTHENIA [None]
  - HEADACHE [None]
  - LOSS OF CONTROL OF LEGS [None]
  - OVERDOSE [None]
  - SPEECH DISORDER [None]
